FAERS Safety Report 9447349 (Version 1)
Quarter: 2013Q3

REPORT INFORMATION
  Report Type: Spontaneous
  Country: US (occurrence: US)
  Receive Date: 20130808
  Receipt Date: 20130808
  Transmission Date: 20140515
  Serious: Yes (Hospitalization, Other)
  Sender: FDA-Public Use
  Company Number: US-AMGEN-USASP2013054477

PATIENT
  Sex: Female

DRUGS (4)
  1. PROLIA [Suspect]
     Indication: OSTEOPOROSIS POSTMENOPAUSAL
     Dosage: UNK
     Route: 065
  2. METHOTREXATE [Concomitant]
  3. TYLENOL                            /00020001/ [Concomitant]
  4. FOLIC ACID [Concomitant]

REACTIONS (15)
  - Pneumonia [Unknown]
  - Fall [Unknown]
  - Urinary tract infection [Unknown]
  - Nephrolithiasis [Unknown]
  - Hepatic function abnormal [Unknown]
  - Viral infection [Unknown]
  - Influenza like illness [Unknown]
  - Condition aggravated [Unknown]
  - Nausea [Unknown]
  - Vomiting [Unknown]
  - Pain [Unknown]
  - Fatigue [Unknown]
  - Differential white blood cell count abnormal [Unknown]
  - Vein disorder [Unknown]
  - Rheumatoid arthritis [Unknown]
